FAERS Safety Report 13800708 (Version 1)
Quarter: 2017Q3

REPORT INFORMATION
  Report Type: Spontaneous
  Country: FR (occurrence: FR)
  Receive Date: 20170727
  Receipt Date: 20170727
  Transmission Date: 20171127
  Serious: Yes (Death)
  Sender: FDA-Public Use
  Company Number: FR-JNJFOC-20170718455

PATIENT
  Age: 70 Year
  Sex: Male

DRUGS (13)
  1. LOXAPAC [Interacting]
     Active Substance: LOXAPINE SUCCINATE
     Indication: AGITATION
     Route: 050
     Dates: start: 20170604, end: 20170604
  2. SERESTA [Interacting]
     Active Substance: OXAZEPAM
     Indication: PROPHYLAXIS AGAINST ALCOHOLIC WITHDRAWAL SYNDROME
     Route: 048
     Dates: start: 20170602, end: 20170604
  3. CLOPIDOGREL [Concomitant]
     Active Substance: CLOPIDOGREL BISULFATE
     Route: 048
  4. HEXAQUINE [Concomitant]
     Active Substance: NIAOULI OIL\QUININE BENZOATE\THIAMINE HYDROCHLORIDE
     Route: 048
  5. TIAPRIDAL [Interacting]
     Active Substance: TIAPRIDE HYDROCHLORIDE
     Indication: AGITATION
     Route: 050
     Dates: start: 201706, end: 20170605
  6. DIAMICRON [Concomitant]
     Active Substance: GLICLAZIDE
     Route: 048
  7. SOTALOL. [Concomitant]
     Active Substance: SOTALOL
     Dosage: DOSE: 1/2-0-1/2, HALF DOSES
     Route: 048
  8. ZOPICLONE [Concomitant]
     Active Substance: ZOPICLONE
     Route: 048
  9. HALDOL [Suspect]
     Active Substance: HALOPERIDOL
     Indication: AGITATION
     Route: 048
     Dates: start: 201706, end: 201706
  10. TELMISARTAN/HCTZ [Concomitant]
     Active Substance: HYDROCHLOROTHIAZIDE\TELMISARTAN
     Dosage: 80/25 MG
     Route: 048
  11. ADARTREL [Concomitant]
     Active Substance: ROPINIROLE
     Route: 048
  12. ATORVASTATIN [Concomitant]
     Active Substance: ATORVASTATIN
     Route: 048
  13. RABEPRAZOLE [Concomitant]
     Active Substance: RABEPRAZOLE
     Route: 048

REACTIONS (4)
  - Drug interaction [Fatal]
  - Pneumonia aspiration [Fatal]
  - Altered state of consciousness [Fatal]
  - Oxygen saturation decreased [Fatal]

NARRATIVE: CASE EVENT DATE: 20170604
